FAERS Safety Report 10696895 (Version 3)
Quarter: 2015Q1

REPORT INFORMATION
  Report Type: Spontaneous
  Country: US (occurrence: US)
  Receive Date: 20150108
  Receipt Date: 20150215
  Transmission Date: 20150721
  Serious: No
  Sender: FDA-Public Use
  Company Number: US-BRISTOL-MYERS SQUIBB COMPANY-21643226

PATIENT
  Sex: Male

DRUGS (3)
  1. ABILIFY [Suspect]
     Active Substance: ARIPIPRAZOLE
     Indication: AGGRESSION
  2. ABILIFY [Suspect]
     Active Substance: ARIPIPRAZOLE
     Indication: IRRITABILITY
  3. ABILIFY [Suspect]
     Active Substance: ARIPIPRAZOLE
     Indication: AUTISM
     Dosage: 5 MG, QD
     Route: 048
     Dates: start: 20141104, end: 20141129

REACTIONS (15)
  - Off label use [Unknown]
  - Cutis laxa [Unknown]
  - Cough [Unknown]
  - Agitation [Unknown]
  - Rhinorrhoea [Unknown]
  - Diarrhoea [Recovered/Resolved]
  - Abnormal behaviour [Unknown]
  - Drooling [Recovered/Resolved]
  - Hyperhidrosis [Recovered/Resolved]
  - Constipation [Recovered/Resolved]
  - Aggression [Unknown]
  - Tongue disorder [Recovered/Resolved]
  - Insomnia [Recovered/Resolved]
  - Somnolence [Recovered/Resolved]
  - Thirst [Unknown]
